FAERS Safety Report 5528110-6 (Version None)
Quarter: 2007Q4

REPORT INFORMATION
  Report Type: 
  Country: None (occurrence: None)
  Receive Date: 20071126
  Receipt Date: 20071126
  Transmission Date: 20080405
  Serious: Yes (Hospitalization)
  Sender: FDA-Public Use
  Company Number: None

PATIENT
  Sex: Female
  Weight: 65.7716 kg

DRUGS (2)
  1. CARBOPLATIN [Suspect]
     Indication: CHEMOTHERAPY
     Dosage: AUC 6 Q 3 WEEKS IV DRIP
     Route: 041
     Dates: start: 20071023, end: 20071113
  2. TAXOTERE [Suspect]
     Indication: CHEMOTHERAPY
     Dosage: 200MG/M2 Q3 WEEKS IV DRIP
     Route: 041
     Dates: start: 20071023, end: 20071113

REACTIONS (3)
  - COUGH [None]
  - FEBRILE NEUTROPENIA [None]
  - RHINITIS [None]
